FAERS Safety Report 9983278 (Version 1)
Quarter: 2014Q1

REPORT INFORMATION
  Report Type: Spontaneous
  Country: JP (occurrence: JP)
  Receive Date: 20140307
  Receipt Date: 20140307
  Transmission Date: 20141002
  Serious: Yes (Life-Threatening, Other)
  Sender: FDA-Public Use
  Company Number: JP-ASTRAZENECA-2014SE16058

PATIENT
  Sex: Female

DRUGS (2)
  1. OMEPRAZON [Suspect]
     Route: 048
  2. STEROID [Concomitant]

REACTIONS (2)
  - Haemorrhage [Unknown]
  - Platelet count decreased [Unknown]
